FAERS Safety Report 19026463 (Version 2)
Quarter: 2021Q3

REPORT INFORMATION
  Report Type: Spontaneous
  Country: DE (occurrence: DE)
  Receive Date: 20210318
  Receipt Date: 20210722
  Transmission Date: 20211014
  Serious: Yes (Hospitalization, Other)
  Sender: FDA-Public Use
  Company Number: NVSC2021DE058641

PATIENT
  Age: 14 Year
  Sex: Male
  Weight: 38.8 kg

DRUGS (1)
  1. EXJADE [Suspect]
     Active Substance: DEFERASIROX
     Indication: IRON OVERLOAD
     Dosage: 11 MG/KG, (BODY WEIGHT)/ 360MG
     Route: 048
     Dates: end: 20200510

REACTIONS (4)
  - Duodenal ulcer [Recovering/Resolving]
  - Abdominal pain [Unknown]
  - Abdominal pain upper [Unknown]
  - Helicobacter gastritis [Unknown]

NARRATIVE: CASE EVENT DATE: 202005
